FAERS Safety Report 24923318 (Version 2)
Quarter: 2025Q1

REPORT INFORMATION
  Report Type: Spontaneous
  Country: US (occurrence: US)
  Receive Date: 20250204
  Receipt Date: 20250222
  Transmission Date: 20250409
  Serious: No
  Sender: SANOFI AVENTIS
  Company Number: US-SA-2025SA031494

PATIENT
  Age: 81 Year
  Sex: Female
  Weight: 47.63 kg

DRUGS (3)
  1. DUPIXENT [Suspect]
     Active Substance: DUPILUMAB
     Indication: Dermatitis atopic
     Dosage: 300 MG, QOW
     Route: 058
     Dates: start: 20240901, end: 202409
  2. DUPIXENT [Suspect]
     Active Substance: DUPILUMAB
     Indication: Pruritus
  3. PREDNISONE [Concomitant]
     Active Substance: PREDNISONE
     Indication: Pruritus

REACTIONS (4)
  - Back pain [Not Recovered/Not Resolved]
  - Gait disturbance [Unknown]
  - Loss of personal independence in daily activities [Unknown]
  - Off label use [Unknown]

NARRATIVE: CASE EVENT DATE: 20240901
